FAERS Safety Report 21979325 (Version 2)
Quarter: 2023Q1

REPORT INFORMATION
  Report Type: Report from Study
  Country: RO (occurrence: None)
  Receive Date: 20230210
  Receipt Date: 20230306
  Transmission Date: 20230417
  Serious: Yes (Death, Other)
  Sender: FDA-Public Use
  Company Number: 2023A034247

PATIENT
  Age: 27287 Day
  Sex: Female

DRUGS (1)
  1. FASLODEX [Suspect]
     Active Substance: FULVESTRANT
     Route: 030
     Dates: start: 20210101, end: 20210601

REACTIONS (2)
  - Malignant neoplasm progression [Fatal]
  - Metastases to bone [Fatal]

NARRATIVE: CASE EVENT DATE: 20210923
